FAERS Safety Report 7869254 (Version 4)
Quarter: 2012Q4

REPORT INFORMATION
  Report Type: 
  Country: CA (occurrence: CA)
  Receive Date: 20110324
  Receipt Date: 20120928
  Transmission Date: 20130627
  Serious: Yes (Hospitalization)
  Sender: FDA-Public Use
  Company Number: CA-GENZYME-CERZ-1001952

PATIENT
  Age: 40 None
  Sex: Female
  Weight: 75.5 kg

DRUGS (13)
  1. CEREZYME [Suspect]
     Indication: GAUCHER^S DISEASE
     Dosage: 16 U/kg, q2w
     Route: 042
     Dates: start: 20010709
  2. CEREZYME [Suspect]
     Dosage: 21 U/kg, q2w
     Route: 042
     Dates: start: 20010709
  3. CEREZYME [Suspect]
     Dosage: 60 U/kg, q2w
     Route: 042
  4. MONOCOR [Concomitant]
     Indication: PRODUCT USED FOR UNKNOWN INDICATION
     Dosage: 5 mg, qd
     Route: 048
  5. LEVOTHYROXINE [Concomitant]
     Indication: HYPOTHYROIDISM
     Dosage: 112 mcg, qd
  6. WARFARIN [Concomitant]
     Indication: AORTIC VALVE REPLACEMENT
     Route: 048
  7. ASPIRIN [Concomitant]
     Indication: PRODUCT USED FOR UNKNOWN INDICATION
     Dosage: 81 mg, qd
     Route: 048
  8. PANTOPRAZOLE [Concomitant]
     Indication: PRODUCT USED FOR UNKNOWN INDICATION
     Dosage: 40 mg, qd
     Route: 048
  9. RAMIPRIL [Concomitant]
     Indication: PRODUCT USED FOR UNKNOWN INDICATION
     Dosage: 2.5 mg, qhs
     Route: 048
  10. LASIX [Concomitant]
     Indication: PRODUCT USED FOR UNKNOWN INDICATION
     Dosage: 20 mg, qd
     Route: 048
  11. K-DUR [Concomitant]
     Indication: PRODUCT USED FOR UNKNOWN INDICATION
     Dosage: 8 mEq, qd
     Route: 048
  12. LORATADINE [Concomitant]
     Indication: PRODUCT USED FOR UNKNOWN INDICATION
     Dosage: 10 mg, qd
     Route: 048
  13. BISOPROLOL [Concomitant]
     Indication: PRODUCT USED FOR UNKNOWN INDICATION
     Dosage: 5 mg, qd
     Route: 048

REACTIONS (5)
  - Subarachnoid haemorrhage [Recovered/Resolved]
  - Endocarditis [Recovered/Resolved]
  - Peripheral embolism [Recovered/Resolved]
  - Sepsis [Recovered/Resolved]
  - Deep vein thrombosis [Unknown]
